FAERS Safety Report 10259608 (Version 2)
Quarter: 2014Q2

REPORT INFORMATION
  Report Type: Report from Study
  Country: HU (occurrence: HU)
  Receive Date: 20140625
  Receipt Date: 20140625
  Transmission Date: 20141212
  Serious: Yes (Other)
  Sender: FDA-Public Use
  Company Number: HU-JNJFOC-20140510939

PATIENT
  Age: 7 Decade
  Sex: Female

DRUGS (1)
  1. STELARA [Suspect]
     Indication: PRODUCT USED FOR UNKNOWN INDICATION
     Route: 058
     Dates: start: 20140507

REACTIONS (5)
  - Dizziness [Unknown]
  - Fall [Unknown]
  - Wrist fracture [Unknown]
  - Hypertension [Unknown]
  - Headache [Recovered/Resolved]
